FAERS Safety Report 22353567 (Version 2)
Quarter: 2024Q4

REPORT INFORMATION
  Report Type: Report from Study
  Country: BR (occurrence: BR)
  Receive Date: 20230523
  Receipt Date: 20241114
  Transmission Date: 20250115
  Serious: No
  Sender: CELLTRION
  Company Number: BR-CELLTRION INC.-2023BR010369

PATIENT

DRUGS (1)
  1. INFLIXIMAB-DYYB [Suspect]
     Active Substance: INFLIXIMAB-DYYB
     Indication: Ankylosing spondylitis
     Dosage: 5 AMPOULES EVERY 8 WEEKS
     Route: 042
     Dates: start: 20220923, end: 202210

REACTIONS (1)
  - Loss of therapeutic response [Unknown]
